FAERS Safety Report 16570548 (Version 1)
Quarter: 2019Q3

REPORT INFORMATION
  Report Type: Report from Study
  Country: US (occurrence: US)
  Receive Date: 20190715
  Receipt Date: 20190715
  Transmission Date: 20191004
  Serious: Yes (Other)
  Sender: FDA-Public Use
  Company Number: US-MYLANLABS-2019M1017169

PATIENT
  Age: 22 Year
  Sex: Female
  Weight: 109 kg

DRUGS (1)
  1. GLATIRAMER ACETATE INJECTION [Suspect]
     Active Substance: GLATIRAMER ACETATE
     Indication: RELAPSING-REMITTING MULTIPLE SCLEROSIS
     Dosage: 40 MILLIGRAM, 3XW
     Route: 058

REACTIONS (9)
  - Multiple sclerosis [Unknown]
  - Injection site pain [Unknown]
  - Injection site mass [Unknown]
  - Dyspnoea [Unknown]
  - Hypoaesthesia [Unknown]
  - Neck pain [Unknown]
  - Injection site pruritus [Unknown]
  - Infusion site nodule [Unknown]
  - Off label use [Unknown]

NARRATIVE: CASE EVENT DATE: 2019
